FAERS Safety Report 7423752-5 (Version None)
Quarter: 2011Q2

REPORT INFORMATION
  Report Type: 
  Country: None (occurrence: None)
  Receive Date: 20110419
  Receipt Date: 20110406
  Transmission Date: 20111010
  Serious: Yes (Hospitalization)
  Sender: FDA-Public Use
  Company Number: US-ALEXION PHARMACEUTICALS INC.-A201100468

PATIENT
  Sex: Male

DRUGS (10)
  1. CALCIUM ACETATE [Concomitant]
     Dosage: 667 MG,  3 CAPS AC
     Route: 048
  2. PRILOSEC [Concomitant]
     Dosage: 20 MG QD
     Route: 048
  3. PREDNISONE [Concomitant]
     Dosage: 5 MG QD
     Route: 048
  4. EXJADE [Concomitant]
     Dosage: 500 MG
     Route: 048
  5. SOLIRIS [Suspect]
     Indication: PAROXYSMAL NOCTURNAL HAEMOGLOBINURIA
     Dosage: UNK
     Route: 042
  6. AMBIEN [Concomitant]
     Dosage: 10 MG PRN
     Route: 048
  7. FOLIC ACID [Concomitant]
     Dosage: 1 MG QD
     Route: 048
  8. RENAGEL [Concomitant]
     Dosage: 800 MG 2 TABS AC
     Route: 048
  9. AVODART [Concomitant]
     Dosage: 0.5 MG HS
     Route: 048
  10. OXYCODONE AND ACETAMINOPHEN [Concomitant]
     Dosage: 5/325 MG Q6HR PRN
     Route: 048

REACTIONS (1)
  - ASTHENIA [None]
